FAERS Safety Report 24645331 (Version 2)
Quarter: 2025Q1

REPORT INFORMATION
  Report Type: Report from Study
  Country: CA (occurrence: CA)
  Receive Date: 20241121
  Receipt Date: 20250131
  Transmission Date: 20250409
  Serious: Yes (Hospitalization)
  Sender: SANDOZ
  Company Number: CA-SANDOZ-SDZ2023CA049020

PATIENT
  Sex: Female

DRUGS (3)
  1. HYRIMOZ [Suspect]
     Active Substance: ADALIMUMAB-ADAZ
     Indication: Hidradenitis
     Route: 058
     Dates: start: 20231011
  2. HYRIMOZ [Suspect]
     Active Substance: ADALIMUMAB-ADAZ
     Dosage: 80 MG, QW
     Route: 058
  3. HYRIMOZ [Suspect]
     Active Substance: ADALIMUMAB-ADAZ
     Dosage: 80 MG, QW (160MG WEEK 0, 80 MGWEEK 2, 40 MG EVERY WEEK AT WEEK 4;WEEKLY)
     Route: 058
     Dates: start: 20240415

REACTIONS (11)
  - Hidradenitis [Unknown]
  - Genital lesion [Not Recovered/Not Resolved]
  - Discharge [Unknown]
  - Gait disturbance [Unknown]
  - Skin lesion [Not Recovered/Not Resolved]
  - Pain [Unknown]
  - Dizziness [Unknown]
  - Chills [Unknown]
  - Tremor [Unknown]
  - Drug effect less than expected [Unknown]
  - Off label use [Unknown]
